FAERS Safety Report 4931056-5 (Version None)
Quarter: 2006Q1

REPORT INFORMATION
  Report Type: 
  Country: None (occurrence: None)
  Receive Date: 20060302
  Receipt Date: 20050711
  Transmission Date: 20060701
  Serious: Yes (Hospitalization, Disabling, Other)
  Sender: FDA-Public Use
  Company Number: US-MERCK-0507USA01389

PATIENT
  Sex: Male

DRUGS (3)
  1. VIOXX [Suspect]
     Indication: ARTHRITIS
     Route: 048
  2. TYLENOL (CAPLET) [Concomitant]
     Route: 065
  3. ALEVE [Concomitant]
     Route: 065

REACTIONS (6)
  - BACK PAIN [None]
  - CEREBROVASCULAR ACCIDENT [None]
  - CHEST PAIN [None]
  - HERNIA [None]
  - INJURY [None]
  - MYOCARDIAL INFARCTION [None]
